FAERS Safety Report 20634688 (Version 4)
Quarter: 2022Q2

REPORT INFORMATION
  Report Type: Report from Study
  Country: GB (occurrence: GB)
  Receive Date: 20220325
  Receipt Date: 20220513
  Transmission Date: 20220721
  Serious: Yes (Hospitalization, Other)
  Sender: FDA-Public Use
  Company Number: GB-NOVARTISPH-NVSC2022GB067338

PATIENT
  Age: 67 Year
  Sex: Male

DRUGS (1)
  1. SIPONIMOD [Suspect]
     Active Substance: SIPONIMOD
     Indication: Secondary progressive multiple sclerosis
     Dosage: UNK UNK, QD
     Route: 048
     Dates: start: 20220211

REACTIONS (9)
  - COVID-19 [Unknown]
  - Syncope [Unknown]
  - Multiple sclerosis [Unknown]
  - Microsleep [Unknown]
  - Insomnia [Unknown]
  - Sinus congestion [Unknown]
  - Skin lesion [Unknown]
  - Nasal congestion [Unknown]
  - Fatigue [Unknown]

NARRATIVE: CASE EVENT DATE: 20220211
